FAERS Safety Report 15394431 (Version 1)
Quarter: 2018Q3

REPORT INFORMATION
  Report Type: Report from Study
  Country: DE (occurrence: DE)
  Receive Date: 20180918
  Receipt Date: 20180918
  Transmission Date: 20181010
  Serious: Yes (Hospitalization, Other)
  Sender: FDA-Public Use
  Company Number: DE-ROCHE-2177112

PATIENT
  Age: 41 Year
  Sex: Male
  Weight: 59 kg

DRUGS (4)
  1. CYCLOPHOSPHAMIDE. [Suspect]
     Active Substance: CYCLOPHOSPHAMIDE
     Indication: WALDENSTROM^S MACROGLOBULINAEMIA
     Dosage: LAST ADMINISTRATION WAS ON 27JUL/2018. DOSE BEFORE AE ONSET WAS 300/400 MG
     Route: 048
     Dates: start: 20180629
  2. BENDAMUSTINE [Concomitant]
     Active Substance: BENDAMUSTINE
     Route: 065
     Dates: start: 20180904
  3. RITUXIMAB. [Suspect]
     Active Substance: RITUXIMAB
     Indication: WALDENSTROM^S MACROGLOBULINAEMIA
     Dosage: LAST ADMINISTRATION WAS ON 27JUL/2018. DOSE BEFORE AE ONSET WAS 1400 MG.
     Route: 058
     Dates: start: 20180727
  4. DEXAMETHASONE. [Suspect]
     Active Substance: DEXAMETHASONE
     Indication: WALDENSTROM^S MACROGLOBULINAEMIA
     Dosage: LAST ADMINISTRATION WAS ON 27/JUL/2018
     Route: 048
     Dates: start: 20180629

REACTIONS (3)
  - Anaemia [Not Recovered/Not Resolved]
  - Disease progression [Not Recovered/Not Resolved]
  - Infection [Not Recovered/Not Resolved]

NARRATIVE: CASE EVENT DATE: 20180822
